FAERS Safety Report 5164186-6 (Version None)
Quarter: 2006Q4

REPORT INFORMATION
  Report Type: 
  Country: None (occurrence: None)
  Receive Date: 20060918
  Receipt Date: 20050902
  Transmission Date: 20070319
  Serious: Yes (Other)
  Sender: FDA-Public Use
  Company Number: US-JNJFOC-20050901251

PATIENT
  Age: 49 Year
  Sex: Female
  Weight: 76.2043 kg

DRUGS (4)
  1. TOPAMAX [Suspect]
     Indication: WEIGHT DECREASED
     Dosage: 150 MG, IN 1 DAY, ORAL
     Route: 048
     Dates: start: 20050101, end: 20050401
  2. HYDROCODONE BITARTRATE [Concomitant]
  3. MORPHINE [Concomitant]
  4. CYMBALTA [Concomitant]

REACTIONS (4)
  - CONVULSION [None]
  - DEHYDRATION [None]
  - DIARRHOEA [None]
  - WEIGHT DECREASED [None]
